FAERS Safety Report 20079806 (Version 1)
Quarter: 2021Q4

REPORT INFORMATION
  Report Type: Spontaneous
  Country: US (occurrence: US)
  Receive Date: 20211117
  Receipt Date: 20211117
  Transmission Date: 20220303
  Serious: No
  Sender: FDA-Public Use
  Company Number: US-GSKCCFUS-Case-01215699_AE-71218

PATIENT
  Age: 79 Year
  Sex: Female

DRUGS (1)
  1. NUCALA [Suspect]
     Active Substance: MEPOLIZUMAB
     Indication: Asthma
     Dosage: 100 MG/ML, Z (EVERY 4 WEEKS)
     Route: 058

REACTIONS (3)
  - Exposure via skin contact [Unknown]
  - Wrong technique in device usage process [Unknown]
  - Underdose [Unknown]

NARRATIVE: CASE EVENT DATE: 20211109
